FAERS Safety Report 25889820 (Version 1)
Quarter: 2025Q4

REPORT INFORMATION
  Report Type: Spontaneous
  Country: US (occurrence: US)
  Receive Date: 20251007
  Receipt Date: 20251007
  Transmission Date: 20260117
  Serious: Yes (Death, Life-Threatening, Hospitalization, Other)
  Sender: PFIZER
  Company Number: US-PFIZER INC-PV202500118632

PATIENT
  Age: 59 Year
  Sex: Male

DRUGS (5)
  1. SIROLIMUS [Suspect]
     Active Substance: SIROLIMUS
     Indication: Perivascular epithelioid cell tumour
     Dosage: 4 MG, DAILY
  2. SIROLIMUS [Suspect]
     Active Substance: SIROLIMUS
     Indication: Mediastinum neoplasm
     Dosage: 2 MG, DAILY
  3. SIROLIMUS [Suspect]
     Active Substance: SIROLIMUS
     Indication: Metastases to lung
  4. PANTOPRAZOLE [Concomitant]
     Active Substance: PANTOPRAZOLE
     Indication: Gastrointestinal haemorrhage
     Route: 042
  5. DEXAMETHASONE [Concomitant]
     Active Substance: DEXAMETHASONE
     Indication: Spinal cord oedema

REACTIONS (3)
  - Drug ineffective [Fatal]
  - Drug level increased [Fatal]
  - Off label use [Unknown]
